FAERS Safety Report 7498665-3 (Version None)
Quarter: 2011Q2

REPORT INFORMATION
  Report Type: 
  Country: None (occurrence: None)
  Receive Date: 20110524
  Receipt Date: 20110518
  Transmission Date: 20111010
  Serious: Yes (Hospitalization)
  Sender: FDA-Public Use
  Company Number: BR-US-EMD SERONO, INC.-7057014

PATIENT
  Sex: Female

DRUGS (7)
  1. NEXIUM [Concomitant]
  2. PHENERGAN [Concomitant]
  3. NIMESULON [Concomitant]
  4. REBIF [Suspect]
     Dates: start: 20110201
  5. DONAREN [Concomitant]
  6. BEROTEC [Concomitant]
     Dosage: 4 DROPS - NEBULIZATION
  7. REBIF [Suspect]
     Indication: RELAPSING-REMITTING MULTIPLE SCLEROSIS
     Dates: start: 20100310, end: 20110201

REACTIONS (3)
  - HEPATIC STEATOSIS [None]
  - WEIGHT INCREASED [None]
  - ARTHRALGIA [None]
